FAERS Safety Report 18618891 (Version 1)
Quarter: 2020Q4

REPORT INFORMATION
  Report Type: Spontaneous
  Country: US (occurrence: US)
  Receive Date: 20201215
  Receipt Date: 20201215
  Transmission Date: 20210114
  Serious: No
  Sender: FDA-Public Use
  Company Number: US-SUPERNUS PHARMACEUTICALS, INC.-2020SUP00112

PATIENT
  Sex: Female
  Weight: 63.49 kg

DRUGS (8)
  1. OXTELLAR XR [Suspect]
     Active Substance: OXCARBAZEPINE
     Dosage: 1200 MG, 1X/DAY; FOR A TOTAL OF 1500 MG PER DAY
     Route: 048
  2. OXTELLAR XR [Suspect]
     Active Substance: OXCARBAZEPINE
     Dosage: 300 MG, 1X/DAY; FOR A TOTAL OF 1500 MG PER DAY
     Route: 048
     Dates: start: 202002
  3. OXTELLAR XR [Suspect]
     Active Substance: OXCARBAZEPINE
     Dosage: TITRATED UP
     Route: 048
  4. IBUPROFEN. [Concomitant]
     Active Substance: IBUPROFEN
  5. OXTELLAR XR [Suspect]
     Active Substance: OXCARBAZEPINE
     Dosage: 300 MG INCRESED EVERY NIGHT; TITRATED UP TO A TOTAL OF 1500 MG PER DAY
  6. OXTELLAR XR [Suspect]
     Active Substance: OXCARBAZEPINE
     Indication: SEIZURE
     Dosage: UNK
     Route: 048
  7. OXTELLAR XR [Suspect]
     Active Substance: OXCARBAZEPINE
     Indication: SEIZURE
     Dosage: UNK
     Route: 048
  8. VITAMIN D [Concomitant]
     Active Substance: VITAMIN D NOS

REACTIONS (9)
  - Diplopia [Recovering/Resolving]
  - Hypoaesthesia [Recovering/Resolving]
  - Dizziness [Recovering/Resolving]
  - Product administration error [Recovered/Resolved]
  - Fatigue [Not Recovered/Not Resolved]
  - Feeling drunk [Recovering/Resolving]
  - Balance disorder [Recovering/Resolving]
  - Disorientation [Recovering/Resolving]
  - Feeling abnormal [Recovering/Resolving]

NARRATIVE: CASE EVENT DATE: 2017
